FAERS Safety Report 6083347-5 (Version None)
Quarter: 2009Q1

REPORT INFORMATION
  Report Type: 
  Country: None (occurrence: None)
  Receive Date: 20090213
  Receipt Date: 20090213
  Transmission Date: 20090719
  Serious: Yes (Hospitalization)
  Sender: FDA-Public Use
  Company Number: None

PATIENT
  Age: 56 Year
  Sex: Female
  Weight: 68.0396 kg

DRUGS (1)
  1. LEVAQUIN [Suspect]
     Indication: PNEUMONIA
     Dosage: ONE 500 MG PILL ONCE DAILY PO
     Route: 048
     Dates: start: 20090129, end: 20090130

REACTIONS (9)
  - ASTHENIA [None]
  - DYSSTASIA [None]
  - IMPAIRED WORK ABILITY [None]
  - JOINT SPRAIN [None]
  - MUSCLE DISORDER [None]
  - MYALGIA [None]
  - NECK INJURY [None]
  - TENDON PAIN [None]
  - WEIGHT BEARING DIFFICULTY [None]
